FAERS Safety Report 7820814-5 (Version None)
Quarter: 2011Q4

REPORT INFORMATION
  Report Type: 
  Country: None (occurrence: None)
  Receive Date: 20111018
  Receipt Date: 20111013
  Transmission Date: 20120403
  Serious: Yes (Hospitalization, Other)
  Sender: FDA-Public Use
  Company Number: US-MERCK-1006USA01818

PATIENT
  Age: 60 Year
  Sex: Female
  Weight: 56 kg

DRUGS (7)
  1. FOSAMAX [Suspect]
     Route: 048
     Dates: start: 20010609, end: 20020701
  2. FOSAMAX [Suspect]
     Route: 048
     Dates: start: 20010609, end: 20020701
  3. FOSAMAX [Suspect]
     Indication: OSTEOPOROSIS
     Route: 048
     Dates: start: 20020701, end: 20080801
  4. FOSAMAX PLUS D [Suspect]
     Indication: OSTEOPENIA
     Route: 048
     Dates: start: 20010101, end: 20080901
  5. FOSAMAX [Suspect]
     Indication: OSTEOPENIA
     Route: 048
     Dates: start: 20020701, end: 20080801
  6. ALENDRONATE SODIUM [Suspect]
     Indication: OSTEOPOROSIS
     Route: 048
     Dates: start: 20080201, end: 20080801
  7. FOSAMAX PLUS D [Suspect]
     Indication: OSTEOPOROSIS
     Route: 048
     Dates: start: 20010101, end: 20080901

REACTIONS (42)
  - FALL [None]
  - GASTRITIS EROSIVE [None]
  - OSTEOARTHRITIS [None]
  - KNEE IMPINGEMENT SYNDROME [None]
  - ARTHROPATHY [None]
  - HAEMORRHOIDS [None]
  - ANAEMIA POSTOPERATIVE [None]
  - HEADACHE [None]
  - DYSURIA [None]
  - EYE IRRITATION [None]
  - SINUS POLYP [None]
  - HOT FLUSH [None]
  - HIATUS HERNIA [None]
  - URINARY INCONTINENCE [None]
  - BLOOD PRESSURE INCREASED [None]
  - BONE DENSITY DECREASED [None]
  - EPISTAXIS [None]
  - OCULAR HYPERAEMIA [None]
  - ANXIETY [None]
  - RHINITIS ALLERGIC [None]
  - PATHOLOGICAL FRACTURE [None]
  - FOOT FRACTURE [None]
  - HYPERLIPIDAEMIA [None]
  - HELICOBACTER TEST POSITIVE [None]
  - GASTROOESOPHAGEAL REFLUX DISEASE [None]
  - POLLAKIURIA [None]
  - PATELLOFEMORAL PAIN SYNDROME [None]
  - FEMUR FRACTURE [None]
  - ACUTE SINUSITIS [None]
  - LOW TURNOVER OSTEOPATHY [None]
  - BARRETT'S OESOPHAGUS [None]
  - VITAMIN D DEFICIENCY [None]
  - TOOTH ABSCESS [None]
  - NAUSEA [None]
  - GALLBLADDER DISORDER [None]
  - GASTRITIS [None]
  - RECTAL POLYP [None]
  - MIGRAINE [None]
  - MUSCULAR WEAKNESS [None]
  - NASAL TURBINATE HYPERTROPHY [None]
  - GASTRIC ULCER [None]
  - PHARYNGITIS [None]
